FAERS Safety Report 8263260-5 (Version None)
Quarter: 2012Q2

REPORT INFORMATION
  Report Type: 
  Country: None (occurrence: None)
  Receive Date: 20120405
  Receipt Date: 20120321
  Transmission Date: 20120825
  Serious: Yes (Other)
  Sender: FDA-Public Use
  Company Number: US-ENDO PHARMACEUTICALS INC.-PRED20120022

PATIENT
  Sex: Female

DRUGS (3)
  1. PREDNISONE [Suspect]
     Indication: TEMPORAL ARTERITIS
     Dosage: VARYING
     Route: 048
     Dates: start: 20100101
  2. PREDNISONE [Suspect]
     Dosage: UNKNOWN
     Route: 048
  3. PREDNISONE [Suspect]
     Route: 048

REACTIONS (10)
  - ABDOMINAL DISCOMFORT [None]
  - ALOPECIA [None]
  - PERSONALITY CHANGE [None]
  - NAIL AVULSION [None]
  - ANGER [None]
  - BLINDNESS UNILATERAL [None]
  - GENERAL PHYSICAL HEALTH DETERIORATION [None]
  - ANXIETY [None]
  - INSOMNIA [None]
  - DEPRESSIVE SYMPTOM [None]
